FAERS Safety Report 5416436-6 (Version None)
Quarter: 2007Q3

REPORT INFORMATION
  Report Type: 
  Country: None (occurrence: None)
  Receive Date: 20070814
  Receipt Date: 20070730
  Transmission Date: 20080115
  Serious: Yes (Hospitalization)
  Sender: FDA-Public Use
  Company Number: SPV1-2007-03515

PATIENT
  Age: 70 Year
  Sex: Female

DRUGS (8)
  1. PENTASA [Suspect]
     Indication: COLITIS ULCERATIVE
     Dosage: 750 MG, 3X/DAY; TID; ORAL
     Route: 048
     Dates: start: 20070508, end: 20070604
  2. AMLODIPINE BESYLATE [Concomitant]
  3. ETIZOLAM (ETIZOLAM) [Concomitant]
  4. PRAVASTATIN [Concomitant]
  5. NATEGLINIDE [Concomitant]
  6. MESALAMINE [Concomitant]
  7. PREDNISOLONE [Concomitant]
  8. TRIMEBUTINE MALEATE (TRIMEBUTINE MALEATE) [Concomitant]

REACTIONS (5)
  - CARDIAC FAILURE [None]
  - LUNG INFILTRATION [None]
  - OEDEMA PERIPHERAL [None]
  - PLEURAL EFFUSION [None]
  - PNEUMONITIS [None]
